FAERS Safety Report 21319084 (Version 4)
Quarter: 2024Q1

REPORT INFORMATION
  Report Type: Spontaneous
  Country: US (occurrence: US)
  Receive Date: 20220911
  Receipt Date: 20240229
  Transmission Date: 20240410
  Serious: No
  Sender: FDA-Public Use
  Company Number: US-SA-SAC20220906000398

PATIENT
  Age: 52 Year
  Sex: Female

DRUGS (2)
  1. DUPIXENT [Suspect]
     Active Substance: DUPILUMAB
     Indication: Dermatitis atopic
     Dosage: 600 MG, 1X
     Route: 058
     Dates: start: 202205, end: 202205
  2. DUPIXENT [Suspect]
     Active Substance: DUPILUMAB
     Dosage: 300 MG, QOW
     Route: 058
     Dates: start: 20220601

REACTIONS (10)
  - Skin ulcer [Unknown]
  - Rash macular [Unknown]
  - Dry skin [Unknown]
  - Headache [Unknown]
  - Eyelid skin dryness [Unknown]
  - Psoriasis [Unknown]
  - Eyelids pruritus [Unknown]
  - Insomnia [Unknown]
  - Skin exfoliation [Unknown]
  - Blepharitis [Unknown]

NARRATIVE: CASE EVENT DATE: 20220101
